FAERS Safety Report 10884858 (Version 1)
Quarter: 2015Q1

REPORT INFORMATION
  Report Type: Spontaneous
  Country: US (occurrence: US)
  Receive Date: 20150304
  Receipt Date: 20150304
  Transmission Date: 20150721
  Serious: Yes (Hospitalization, Other)
  Sender: FDA-Public Use
  Company Number: US-GLENMARK GENERICS INC.-2015GMK014200

PATIENT
  Age: 36 Year
  Sex: Female
  Weight: 102.95 kg

DRUGS (9)
  1. NORETHINDRONE ACETATE TABLETS [Suspect]
     Active Substance: NORETHINDRONE ACETATE
     Indication: UTERINE LEIOMYOMA
     Dosage: 5 MG, UNK
     Route: 048
     Dates: start: 20150126
  2. LUPRON [Suspect]
     Active Substance: LEUPROLIDE ACETATE
     Indication: UTERINE LEIOMYOMA
     Dosage: 3.75 MG, ONCE IN A MONTH
     Dates: start: 2009, end: 201401
  3. LEUPROLIDE ACETATE. [Suspect]
     Active Substance: LEUPROLIDE ACETATE
     Indication: UTERINE LEIOMYOMA
     Dosage: UNK
     Dates: start: 20150126
  4. VIGRAN [Concomitant]
     Indication: PRODUCT USED FOR UNKNOWN INDICATION
     Dosage: UNK
  5. MORTIN [Concomitant]
     Indication: PRODUCT USED FOR UNKNOWN INDICATION
     Dosage: UNK
  6. ORTHO-NOVUM                        /00013701/ [Concomitant]
     Indication: PRODUCT USED FOR UNKNOWN INDICATION
     Dosage: 1/35 TABLETS
     Dates: start: 201401, end: 201406
  7. LUPRON [Suspect]
     Active Substance: LEUPROLIDE ACETATE
     Indication: MENORRHAGIA
  8. MEGACE [Concomitant]
     Active Substance: MEGESTROL ACETATE
     Indication: PRODUCT USED FOR UNKNOWN INDICATION
     Dosage: 40 MG, BID
     Dates: start: 201406
  9. LUPRON [Suspect]
     Active Substance: LEUPROLIDE ACETATE
     Indication: ENDOMETRIOSIS

REACTIONS (16)
  - Night sweats [Unknown]
  - Muscle spasms [Unknown]
  - Anaemia [Unknown]
  - Constipation [Unknown]
  - Pain in extremity [Unknown]
  - Uterine leiomyoma [Unknown]
  - Fatigue [Unknown]
  - Deep vein thrombosis [Unknown]
  - Loss of consciousness [Recovered/Resolved]
  - Hot flush [Unknown]
  - Dyspnoea exertional [Unknown]
  - Menstruation normal [Unknown]
  - Dysmenorrhoea [Unknown]
  - Menorrhagia [Unknown]
  - Abdominal pain [Unknown]
  - Vaginal haemorrhage [Unknown]

NARRATIVE: CASE EVENT DATE: 201404
